FAERS Safety Report 8365884-3 (Version None)
Quarter: 2012Q2

REPORT INFORMATION
  Report Type: 
  Country: None (occurrence: None)
  Receive Date: 20120517
  Receipt Date: 20120508
  Transmission Date: 20120825
  Serious: Yes (Hospitalization, Other)
  Sender: FDA-Public Use
  Company Number: DE-ACCORD-013266

PATIENT
  Age: 27 Year
  Sex: Male

DRUGS (11)
  1. TACROLIMUS [Suspect]
     Indication: IMMUNOSUPPRESSION
     Dosage: TARGET LEVEL 5-15 NG/ML
  2. LOPINAVIR/RITONAVIR [Concomitant]
     Indication: ANTIRETROVIRAL THERAPY
     Dosage: 200/50 MG
     Route: 048
  3. EMTRICITABINE AND TENOFOVIR DISOPROXIL FUMARATE [Concomitant]
     Indication: ANTIRETROVIRAL THERAPY
     Dosage: 245/200 MG
     Route: 048
  4. FLUCONAZOLE [Concomitant]
     Indication: INFECTION PROPHYLAXIS
     Route: 048
  5. PENTAMIDINE ISETHIONATE [Concomitant]
     Indication: INFECTION PROPHYLAXIS
     Dosage: ALL 3 WEEKS
     Route: 045
  6. MARAVIROC [Concomitant]
     Indication: ANTIRETROVIRAL THERAPY
     Route: 048
  7. ACYCLOVIR [Concomitant]
     Indication: INFECTION PROPHYLAXIS
  8. MYCOPHENOLATE MOFETIL [Suspect]
     Indication: IMMUNOSUPPRESSION
     Dosage: INITIAL 2 X 1 G DAILY, THEN DOSE REDUCTION.
  9. RALTEGRAVIR [Concomitant]
     Indication: ANTIRETROVIRAL THERAPY
     Route: 048
  10. CYCLOPHOSPHAMIDE [Suspect]
  11. ANTI-THYMOCYTE GLOBULIN EQUINE NOS [Suspect]
     Indication: IMMUNOSUPPRESSION

REACTIONS (8)
  - KAPOSI'S SARCOMA [None]
  - RENAL FAILURE [None]
  - IMPAIRED GASTRIC EMPTYING [None]
  - CYSTITIS HAEMORRHAGIC [None]
  - CYTOMEGALOVIRUS INFECTION [None]
  - MUCOSAL INFLAMMATION [None]
  - OFF LABEL USE [None]
  - DEPRESSION [None]
